FAERS Safety Report 12987835 (Version 4)
Quarter: 2017Q3

REPORT INFORMATION
  Report Type: Report from Study
  Country: GB (occurrence: GB)
  Receive Date: 20161130
  Receipt Date: 20170712
  Transmission Date: 20171127
  Serious: Yes (Hospitalization)
  Sender: FDA-Public Use
  Company Number: PHFR2016GB009340

PATIENT
  Age: 56 Year
  Sex: Male
  Weight: 129 kg

DRUGS (5)
  1. METFORMIN [Concomitant]
     Active Substance: METFORMIN HYDROCHLORIDE
     Indication: DIABETES MELLITUS
     Dosage: 500 MG, UNK
     Route: 048
     Dates: start: 20160928
  2. COSENTYX [Suspect]
     Active Substance: SECUKINUMAB
     Indication: PSORIATIC ARTHROPATHY
     Dosage: 300 MG, QMO
     Route: 058
     Dates: start: 201608, end: 201609
  3. METHOTREXATE. [Concomitant]
     Active Substance: METHOTREXATE
     Indication: PSORIATIC ARTHROPATHY
  4. LISINOPRIL. [Concomitant]
     Active Substance: LISINOPRIL
     Indication: HYPERTENSION
     Dosage: 20 MG, UNK
     Route: 048
  5. METHOTREXATE. [Concomitant]
     Active Substance: METHOTREXATE
     Indication: PSORIASIS
     Dosage: 20 MG/ML, UNK
     Route: 048
     Dates: end: 20160927

REACTIONS (16)
  - Pyrexia [Unknown]
  - Pharyngitis [Unknown]
  - Rash [Unknown]
  - Fatigue [Unknown]
  - Tongue ulceration [Unknown]
  - Prostatomegaly [Unknown]
  - Mouth ulceration [Unknown]
  - Hyperhidrosis [Unknown]
  - C-reactive protein increased [Unknown]
  - General physical health deterioration [Unknown]
  - Urinary tract infection [Recovered/Resolved]
  - Sepsis [Unknown]
  - Mouth swelling [Unknown]
  - Swelling face [Unknown]
  - Memory impairment [Unknown]
  - Malaise [Unknown]

NARRATIVE: CASE EVENT DATE: 20160922
